FAERS Safety Report 4397305-X (Version None)
Quarter: 2004Q3

REPORT INFORMATION
  Report Type: 
  Country: None (occurrence: None)
  Receive Date: 20040708
  Receipt Date: 20040622
  Transmission Date: 20050211
  Serious: Yes (Hospitalization)
  Sender: FDA-Public Use
  Company Number: DSA_24599_2004

PATIENT
  Age: 55 Year
  Sex: Male

DRUGS (5)
  1. RENITEC [Suspect]
     Indication: HYPERTENSION
     Dosage: 20 MG Q DAY PO
     Route: 048
  2. ASPIRIN [Concomitant]
  3. IMDUR [Concomitant]
  4. METOPROLOL [Concomitant]
  5. PLAVIX [Concomitant]

REACTIONS (4)
  - ANGINA UNSTABLE [None]
  - BLOOD CREATINE PHOSPHOKINASE MB INCREASED [None]
  - ELECTROCARDIOGRAM ST SEGMENT DEPRESSION [None]
  - TROPONIN INCREASED [None]
